FAERS Safety Report 15738361 (Version 1)
Quarter: 2018Q4

REPORT INFORMATION
  Report Type: Spontaneous
  Country: CA (occurrence: CA)
  Receive Date: 20181219
  Receipt Date: 20181219
  Transmission Date: 20190205
  Serious: Yes (Other)
  Sender: FDA-Public Use
  Company Number: CA-CELLTRION INC.-2018CA018727

PATIENT

DRUGS (9)
  1. INFLECTRA [Suspect]
     Active Substance: INFLIXIMAB-DYYB
     Dosage: 400 MG, AT 2, 6 WEEKS, THEN EVERY 8 WEEKS
     Dates: start: 20180607
  2. METHOTREXATE. [Concomitant]
     Active Substance: METHOTREXATE
     Dosage: UNK
  3. FOLIC ACID ALMUS [Concomitant]
     Active Substance: FOLIC ACID
     Dosage: UNK
  4. MIDAZOLAM [Concomitant]
     Active Substance: MIDAZOLAM HYDROCHLORIDE
  5. PREDNISONE. [Concomitant]
     Active Substance: PREDNISONE
     Dosage: UNK
     Dates: start: 20180301
  6. FENTANYL. [Concomitant]
     Active Substance: FENTANYL
  7. FERAMAX [Concomitant]
     Active Substance: IRON\POLYSACCHARIDES
  8. INFLECTRA [Suspect]
     Active Substance: INFLIXIMAB-DYYB
     Dosage: 400 MG, CYCLIC (EVERY 2, 6 WEEKS, THEN EVERY 8 WEEKS)
     Route: 042
     Dates: start: 20180412
  9. INFLECTRA [Suspect]
     Active Substance: INFLIXIMAB-DYYB
     Indication: CROHN^S DISEASE
     Dosage: 400 MG, CYCLIC (EVERY 2, 6 WEEKS, THEN EVERY 8 WEEKS)
     Route: 042
     Dates: start: 20180301

REACTIONS (14)
  - Proctalgia [Recovered/Resolved]
  - Rectal stenosis [Unknown]
  - Large intestinal stenosis [Unknown]
  - Diarrhoea [Recovering/Resolving]
  - Anal haemorrhage [Recovered/Resolved]
  - Drug effect incomplete [Unknown]
  - Fistula discharge [Recovered/Resolved]
  - Arthralgia [Unknown]
  - Condition aggravated [Unknown]
  - Anal fistula [Recovering/Resolving]
  - Anal fistula [Unknown]
  - Loss of personal independence in daily activities [Unknown]
  - Anal fissure [Unknown]
  - Proctalgia [Unknown]
